FAERS Safety Report 10583899 (Version 1)
Quarter: 2014Q4

REPORT INFORMATION
  Report Type: Spontaneous
  Country: US (occurrence: None)
  Receive Date: 20141113
  Receipt Date: 20141113
  Transmission Date: 20150529
  Serious: No
  Sender: FDA-Public Use
  Company Number: None

PATIENT
  Age: 17 Year
  Sex: Female
  Weight: 75.75 kg

DRUGS (4)
  1. OMNARIS [Suspect]
     Active Substance: CICLESONIDE
     Indication: SEASONAL ALLERGY
     Dosage: SPRAY IN EACH NOSTRIL (2 SPRAYS)
     Route: 045
     Dates: start: 20140529, end: 20141016
  2. VITAMIN C [Concomitant]
     Active Substance: ASCORBIC ACID
  3. LEVOCETIRIZINE [Concomitant]
     Active Substance: LEVOCETIRIZINE
  4. CALCIUM [Concomitant]
     Active Substance: CALCIUM

REACTIONS (7)
  - Blood testosterone increased [None]
  - Weight increased [None]
  - Thyroid disorder [None]
  - Hair growth abnormal [None]
  - Cushingoid [None]
  - Polycystic ovaries [None]
  - Amenorrhoea [None]
